FAERS Safety Report 21650069 (Version 1)
Quarter: 2022Q4

REPORT INFORMATION
  Report Type: Spontaneous
  Country: US (occurrence: None)
  Receive Date: 20221123
  Receipt Date: 20221123
  Transmission Date: 20230113
  Serious: No
  Sender: FDA-Public Use
  Company Number: None

PATIENT
  Age: 15 Year
  Sex: Female
  Weight: 81 kg

DRUGS (3)
  1. STELARA [Suspect]
     Active Substance: USTEKINUMAB
     Indication: Crohn^s disease
     Dosage: OTHER QUANTITY : 2 INJECTION(S);?OTHER FREQUENCY : EVERY 4 WEEKS;?
     Route: 030
     Dates: start: 20210415
  2. STELARA [Suspect]
     Active Substance: USTEKINUMAB
     Indication: Arthritis
  3. STELARA [Suspect]
     Active Substance: USTEKINUMAB
     Indication: Psoriasis

REACTIONS (5)
  - Injection site pain [None]
  - Myalgia [None]
  - Muscle tightness [None]
  - Incorrect dose administered by device [None]
  - Device delivery system issue [None]

NARRATIVE: CASE EVENT DATE: 20221117
